FAERS Safety Report 10344895 (Version 1)
Quarter: 2014Q3

REPORT INFORMATION
  Report Type: Spontaneous
  Country: US (occurrence: US)
  Receive Date: 20140728
  Receipt Date: 20140728
  Transmission Date: 20150326
  Serious: No
  Sender: FDA-Public Use
  Company Number: US-PFIZER INC-2014205397

PATIENT
  Sex: Female

DRUGS (3)
  1. CARBOCAINE [Suspect]
     Active Substance: MEPIVACAINE HYDROCHLORIDE
  2. DEMEROL [Suspect]
     Active Substance: MEPERIDINE HYDROCHLORIDE
  3. ATROPINE SULFATE. [Suspect]
     Active Substance: ATROPINE SULFATE

REACTIONS (1)
  - Drug hypersensitivity [Unknown]
